FAERS Safety Report 20683574 (Version 1)
Quarter: 2022Q2

REPORT INFORMATION
  Report Type: Spontaneous
  Country: LB (occurrence: LB)
  Receive Date: 20220407
  Receipt Date: 20220407
  Transmission Date: 20220721
  Serious: Yes (Life-Threatening, Hospitalization, Other)
  Sender: FDA-Public Use
  Company Number: LB-NOVARTISPH-NVSC2022LB078021

PATIENT
  Age: 73 Year
  Sex: Female

DRUGS (11)
  1. OXALIPLATIN [Suspect]
     Active Substance: OXALIPLATIN
     Indication: Colon cancer metastatic
     Dosage: UNK, CYCLIC (1ST CYCLE)
     Route: 041
     Dates: start: 20190221
  2. OXALIPLATIN [Suspect]
     Active Substance: OXALIPLATIN
     Dosage: UNK, CYCLIC (2ND CYCLE WITH 25 PERCENT DOSE REDUCTION)
     Route: 041
     Dates: start: 20190311
  3. FLUOROURACIL [Concomitant]
     Active Substance: FLUOROURACIL
     Indication: Colon cancer metastatic
     Dosage: UNK, CYCLIC (1ST CYCLE)
     Route: 041
     Dates: start: 20190221
  4. FLUOROURACIL [Concomitant]
     Active Substance: FLUOROURACIL
     Dosage: UNK, CYCLIC (2ND CYCLE WITH 25 PERCENT DOSE REDUCTION)
     Route: 041
     Dates: start: 20190311
  5. LEUCOVORIN [Concomitant]
     Active Substance: LEUCOVORIN
     Indication: Colon cancer metastatic
     Dosage: UNK, CYCLIC (1ST CYCLE)
     Route: 041
     Dates: start: 20190221
  6. LEUCOVORIN [Concomitant]
     Active Substance: LEUCOVORIN
     Dosage: UNK, CYCLIC (2ND CYCLE WITH 25 PERCENT DOSE REDUCTION)
     Route: 041
     Dates: start: 20190311
  7. BEVACIZUMAB [Concomitant]
     Active Substance: BEVACIZUMAB
     Indication: Colon cancer metastatic
     Dosage: UNK, CYCLIC (1ST CYCLE)
     Route: 041
     Dates: start: 20190221
  8. BEVACIZUMAB [Concomitant]
     Active Substance: BEVACIZUMAB
     Dosage: UNK, CYCLIC (2ND CYCLE WITH 25 PERCENT DOSE REDUCTION)
     Route: 041
     Dates: start: 20190311
  9. IRBESARTAN [Concomitant]
     Active Substance: IRBESARTAN
     Indication: Product used for unknown indication
     Dosage: UNK
     Route: 065
  10. AMLODIPINE [Concomitant]
     Active Substance: AMLODIPINE BESYLATE
     Indication: Product used for unknown indication
     Dosage: UNK
     Route: 065
  11. ATENOLOL [Concomitant]
     Active Substance: ATENOLOL
     Indication: Product used for unknown indication
     Dosage: UNK
     Route: 065

REACTIONS (2)
  - Thrombotic microangiopathy [Recovering/Resolving]
  - Neutropenia [Unknown]
